FAERS Safety Report 17054647 (Version 1)
Quarter: 2019Q4

REPORT INFORMATION
  Report Type: Spontaneous
  Country: GB (occurrence: ES)
  Receive Date: 20191120
  Receipt Date: 20191120
  Transmission Date: 20200122
  Serious: Yes (Other)
  Sender: FDA-Public Use
  Company Number: ES-BAYER-2019-202569

PATIENT
  Age: 76 Year
  Sex: Male

DRUGS (9)
  1. SERETIDE [Concomitant]
     Active Substance: FLUTICASONE PROPIONATE\SALMETEROL XINAFOATE
     Dosage: UNK
  2. SIMVASTATINA [Concomitant]
     Active Substance: SIMVASTATIN
     Dosage: 40 MG
  3. ENTRESTO [Concomitant]
     Active Substance: SACUBITRIL\VALSARTAN
     Dosage: UNK
  4. BISOPROLOL [Concomitant]
     Active Substance: BISOPROLOL
     Dosage: 5 MG
  5. BAYCIP 500 MG [Suspect]
     Active Substance: CIPROFLOXACIN
     Indication: PROSTATITIS
     Dosage: 500 MG, BID
     Route: 048
     Dates: start: 20190912, end: 20190919
  6. SINTROM [Concomitant]
     Active Substance: ACENOCOUMAROL
     Dosage: 4 MG
  7. UNIKET [Concomitant]
     Active Substance: ISOSORBIDE MONONITRATE
     Dosage: 20 MG
  8. EPLERENONA [Concomitant]
     Active Substance: EPLERENONE
     Dosage: 25 MG
  9. SEGURIL [Concomitant]
     Active Substance: FUROSEMIDE
     Dosage: 40 MG

REACTIONS (1)
  - Muscle rupture [Unknown]

NARRATIVE: CASE EVENT DATE: 20190923
